FAERS Safety Report 18155205 (Version 1)
Quarter: 2020Q3

REPORT INFORMATION
  Report Type: Spontaneous
  Country: US (occurrence: US)
  Receive Date: 20200817
  Receipt Date: 20200817
  Transmission Date: 20201103
  Serious: No
  Sender: FDA-Public Use
  Company Number: US-ALLERGAN-1944704US

PATIENT
  Sex: Male

DRUGS (5)
  1. DDAVP [Concomitant]
     Active Substance: DESMOPRESSIN ACETATE
  2. ANDRODERM [Suspect]
     Active Substance: TESTOSTERONE
     Indication: PRIMARY HYPOGONADISM
     Dosage: 4 MG
     Route: 062
  3. ANDRODERM [Suspect]
     Active Substance: TESTOSTERONE
     Dosage: 2 MG
     Route: 062
     Dates: start: 2018
  4. CORTES [Concomitant]
     Active Substance: HYDROCORTISONE ACETATE
  5. SYNTHROID [Concomitant]
     Active Substance: LEVOTHYROXINE SODIUM

REACTIONS (3)
  - Off label use [Unknown]
  - Blood testosterone decreased [Unknown]
  - Application site erythema [Recovered/Resolved]
